FAERS Safety Report 19503895 (Version 3)
Quarter: 2021Q3

REPORT INFORMATION
  Report Type: Spontaneous
  Country: DE (occurrence: DE)
  Receive Date: 20210707
  Receipt Date: 20210809
  Transmission Date: 20211014
  Serious: Yes (Other)
  Sender: FDA-Public Use
  Company Number: NVSC2021DE147260

PATIENT
  Sex: Male
  Weight: 64 kg

DRUGS (12)
  1. BISOHEXAL [Suspect]
     Active Substance: BISOPROLOL FUMARATE
     Indication: SUPRAVENTRICULAR EXTRASYSTOLES
     Dosage: 5 MG
     Route: 065
     Dates: start: 202002, end: 2020
  2. BISOHEXAL [Suspect]
     Active Substance: BISOPROLOL FUMARATE
     Dosage: 1.25 MG, Q48H
     Route: 048
     Dates: start: 2021, end: 2021
  3. BISOHEXAL [Suspect]
     Active Substance: BISOPROLOL FUMARATE
     Dosage: 1.25 MG, (DAY 1,3,6,11)
     Route: 048
     Dates: start: 202102, end: 2021
  4. BISOHEXAL [Suspect]
     Active Substance: BISOPROLOL FUMARATE
     Dosage: AROUND 0.3 MG, QOD (EVERY 2ND DAY)
     Route: 048
     Dates: start: 2021, end: 20210713
  5. BISOHEXAL [Suspect]
     Active Substance: BISOPROLOL FUMARATE
     Dosage: 1.25 MG
     Route: 048
     Dates: start: 2021, end: 2021
  6. BISOHEXAL [Suspect]
     Active Substance: BISOPROLOL FUMARATE
     Dosage: AROUND 0.6 MG, QD
     Route: 048
     Dates: start: 2021, end: 2021
  7. BISOHEXAL [Suspect]
     Active Substance: BISOPROLOL FUMARATE
     Dosage: AROUND 0.3 MG, QD
     Route: 048
     Dates: start: 2021, end: 2021
  8. BISOHEXAL [Suspect]
     Active Substance: BISOPROLOL FUMARATE
     Dosage: 1.25 MG (EVERY 36 HOURS)
     Route: 048
     Dates: start: 2021, end: 2021
  9. BISOHEXAL [Suspect]
     Active Substance: BISOPROLOL FUMARATE
     Indication: SINUS TACHYCARDIA
     Dosage: 5 MG
     Route: 048
     Dates: start: 20200115, end: 2020
  10. BISOHEXAL [Suspect]
     Active Substance: BISOPROLOL FUMARATE
     Dosage: 2.5 MG
     Route: 048
     Dates: start: 2020, end: 2020
  11. BISOHEXAL [Suspect]
     Active Substance: BISOPROLOL FUMARATE
     Dosage: 1.25 MG
     Route: 048
     Dates: start: 2020, end: 202102
  12. BISOHEXAL [Suspect]
     Active Substance: BISOPROLOL FUMARATE
     Dosage: 1.25 MG, EVERY 60 HOURS
     Route: 048
     Dates: start: 2021, end: 2021

REACTIONS (11)
  - Tachycardia [Recovered/Resolved]
  - Malaise [Recovered/Resolved]
  - Fatigue [Recovered/Resolved]
  - Wrong technique in product usage process [Unknown]
  - Blood pressure increased [Recovered/Resolved]
  - Asthenia [Recovered/Resolved]
  - Depressed mood [Recovered/Resolved]
  - Product use in unapproved indication [Unknown]
  - Withdrawal syndrome [Recovered/Resolved]
  - Chest discomfort [Recovered/Resolved]
  - Abdominal discomfort [Recovered/Resolved]

NARRATIVE: CASE EVENT DATE: 202003
